FAERS Safety Report 5136780-X (Version None)
Quarter: 2006Q4

REPORT INFORMATION
  Report Type: 
  Country: None (occurrence: None)
  Receive Date: 20061023
  Receipt Date: 20061011
  Transmission Date: 20070319
  Serious: Yes (Other)
  Sender: FDA-Public Use
  Company Number: STI-2006-00633

PATIENT
  Age: 15 Year
  Sex: Female

DRUGS (2)
  1. 516B DUAC (CLINDAMYCIN + BNZOYL PEROXIDE) (BENZOYL PEROXIDE) [Suspect]
     Indication: ACNE
     Dosage: EVENING, TOPICAL
     Route: 061
     Dates: start: 20061008
  2. DOVE SOAP (DERMATOLOGICALS) [Concomitant]

REACTIONS (12)
  - BURNING SENSATION [None]
  - DISCOMFORT [None]
  - ERYTHEMA [None]
  - EYE SWELLING [None]
  - JAW DISORDER [None]
  - LIP SWELLING [None]
  - PRURITUS [None]
  - SKIN EXFOLIATION [None]
  - SPEECH DISORDER [None]
  - SWELLING FACE [None]
  - TREATMENT NONCOMPLIANCE [None]
  - VISION BLURRED [None]
